FAERS Safety Report 20571553 (Version 1)
Quarter: 2022Q1

REPORT INFORMATION
  Report Type: Spontaneous
  Country: US (occurrence: US)
  Receive Date: 20220309
  Receipt Date: 20220309
  Transmission Date: 20220423
  Serious: Yes (Hospitalization, Other)
  Sender: FDA-Public Use
  Company Number: US-MLMSERVICE-20220224-3397751-1

PATIENT
  Age: 88 Year
  Sex: Female

DRUGS (5)
  1. ANASTROZOLE [Suspect]
     Active Substance: ANASTROZOLE
     Indication: Breast cancer
  2. LOSARTAN [Suspect]
     Active Substance: LOSARTAN
     Indication: Product used for unknown indication
  3. MEMANTINE [Concomitant]
     Active Substance: MEMANTINE
     Indication: Dementia
  4. MIRTAZAPINE [Concomitant]
     Active Substance: MIRTAZAPINE
  5. DONEPEZIL [Concomitant]
     Active Substance: DONEPEZIL
     Indication: Dementia

REACTIONS (4)
  - Dry mouth [Unknown]
  - Cellulitis [Recovering/Resolving]
  - Sialoadenitis [Recovering/Resolving]
  - Aptyalism [Unknown]
